FAERS Safety Report 9685976 (Version 2)
Quarter: 2013Q4

REPORT INFORMATION
  Report Type: Spontaneous
  Country: US (occurrence: US)
  Receive Date: 20131113
  Receipt Date: 20131113
  Transmission Date: 20140711
  Serious: No
  Sender: FDA-Public Use
  Company Number: US-ALLERGAN-1306864US

PATIENT
  Sex: Male

DRUGS (1)
  1. COMBIGAN[R] [Suspect]
     Indication: PRODUCT USED FOR UNKNOWN INDICATION
     Dosage: 4 GTT, UNK
     Route: 047

REACTIONS (3)
  - Eye inflammation [Recovering/Resolving]
  - Incorrect dose administered [Unknown]
  - Eye irritation [Recovering/Resolving]
